FAERS Safety Report 4614307-6 (Version None)
Quarter: 2005Q1

REPORT INFORMATION
  Report Type: 
  Country: None (occurrence: None)
  Receive Date: 20050308
  Receipt Date: 20041112
  Transmission Date: 20050727
  Serious: Yes (Other)
  Sender: FDA-Public Use
  Company Number: 2004UW23422

PATIENT
  Age: 57 Year
  Sex: Male
  Weight: 84.368 kg

DRUGS (5)
  1. CRESTOR [Suspect]
     Indication: HYPERCHOLESTEROLAEMIA
     Dosage: 10 MG DAILY PO
     Route: 048
  2. ACTOS [Concomitant]
  3. BENICAR [Concomitant]
  4. METFORMIN HCL [Concomitant]
  5. VITAMINS [Concomitant]

REACTIONS (2)
  - INTRAOCULAR PRESSURE INCREASED [None]
  - MUSCLE TWITCHING [None]
